FAERS Safety Report 9191447 (Version 1)
Quarter: 2013Q1

REPORT INFORMATION
  Report Type: Spontaneous
  Country: MY (occurrence: MY)
  Receive Date: 20130326
  Receipt Date: 20130326
  Transmission Date: 20140127
  Serious: Yes (Hospitalization, Other)
  Sender: FDA-Public Use
  Company Number: PHHY2013MY027988

PATIENT
  Age: 8 Month
  Sex: Female

DRUGS (1)
  1. PARACETAMOL [Suspect]
     Dosage: 105 MG, QID

REACTIONS (16)
  - Upper gastrointestinal haemorrhage [Recovered/Resolved]
  - Haematemesis [Recovered/Resolved]
  - Melaena [Recovered/Resolved]
  - Ascites [Recovered/Resolved]
  - Convulsion [Recovered/Resolved]
  - Acute hepatic failure [Recovered/Resolved]
  - Hepatosplenomegaly [Recovered/Resolved]
  - Hepatic encephalopathy [Not Recovered/Not Resolved]
  - Hyperreflexia [Recovered/Resolved]
  - Hypertonia [Recovered/Resolved]
  - Overdose [Unknown]
  - Oedema [Recovered/Resolved]
  - Rash generalised [Recovered/Resolved]
  - Somnolence [Recovered/Resolved]
  - Crepitations [Recovered/Resolved]
  - Pallor [Recovered/Resolved]
